FAERS Safety Report 19640390 (Version 2)
Quarter: 2021Q4

REPORT INFORMATION
  Report Type: Spontaneous
  Country: CA (occurrence: CA)
  Receive Date: 20210730
  Receipt Date: 20211020
  Transmission Date: 20220303
  Serious: Yes (Hospitalization)
  Sender: FDA-Public Use
  Company Number: 2021A647653

PATIENT
  Age: 91 Year
  Sex: Female

DRUGS (1)
  1. SYMBICORT [Suspect]
     Active Substance: BUDESONIDE\FORMOTEROL FUMARATE DIHYDRATE
     Indication: Chronic obstructive pulmonary disease
     Dosage: TWO TIMES A DAY, 100??G/D,
     Route: 055

REACTIONS (3)
  - Dyspnoea [Recovering/Resolving]
  - Device delivery system issue [Unknown]
  - Drug ineffective [Unknown]
